FAERS Safety Report 25184992 (Version 1)
Quarter: 2025Q2

REPORT INFORMATION
  Report Type: Spontaneous
  Country: US (occurrence: None)
  Receive Date: 20250410
  Receipt Date: 20250410
  Transmission Date: 20250716
  Serious: Yes (Life-Threatening, Hospitalization, Other)
  Sender: FDA-CTU
  Company Number: None

PATIENT
  Age: 66 Year
  Sex: Female
  Weight: 95 kg

DRUGS (1)
  1. METFORMIN HYDROCHLORIDE [Suspect]
     Active Substance: METFORMIN HYDROCHLORIDE
     Indication: Diabetes mellitus
     Dosage: FREQUENCY : DAILY;?
     Route: 048

REACTIONS (11)
  - Respiratory disorder [None]
  - Hypophagia [None]
  - Nonspecific reaction [None]
  - Tachypnoea [None]
  - Metabolic acidosis [None]
  - Influenza A virus test positive [None]
  - Malaise [None]
  - Pulseless electrical activity [None]
  - Cardiac arrest [None]
  - Haemodialysis [None]
  - Metabolic acidosis [None]

NARRATIVE: CASE EVENT DATE: 20250410
